FAERS Safety Report 14208143 (Version 5)
Quarter: 2018Q1

REPORT INFORMATION
  Report Type: Spontaneous
  Country: US (occurrence: US)
  Receive Date: 20171121
  Receipt Date: 20180117
  Transmission Date: 20180508
  Serious: Yes (Other)
  Sender: FDA-Public Use
  Company Number: PHEH2017US037474

PATIENT
  Sex: Female

DRUGS (3)
  1. LENVIMA [Suspect]
     Active Substance: LENVATINIB
     Indication: RENAL CELL CARCINOMA
     Dosage: 18 MG, QD
     Route: 048
     Dates: start: 20171104
  2. LENVIMA [Suspect]
     Active Substance: LENVATINIB
     Dosage: 14 MG, QD
     Route: 048
     Dates: start: 20171104
  3. AFINITOR [Suspect]
     Active Substance: EVEROLIMUS
     Indication: PRODUCT USED FOR UNKNOWN INDICATION
     Dosage: UNK
     Route: 065

REACTIONS (11)
  - Metastases to lung [Unknown]
  - Stomatitis [Unknown]
  - Oral pain [Unknown]
  - Vomiting [Unknown]
  - Weight decreased [Unknown]
  - Dry mouth [Unknown]
  - Neoplasm [Unknown]
  - Decreased appetite [Unknown]
  - Constipation [Unknown]
  - Hypertension [Unknown]
  - Tongue discomfort [Unknown]
